FAERS Safety Report 4629415-3 (Version None)
Quarter: 2005Q2

REPORT INFORMATION
  Report Type: 
  Country: None (occurrence: None)
  Receive Date: 20050405
  Receipt Date: 20050323
  Transmission Date: 20051028
  Serious: Yes (Hospitalization)
  Sender: FDA-Public Use
  Company Number: DSA_26168_2005

PATIENT
  Age: 43 Year
  Sex: Female

DRUGS (5)
  1. TAVOR [Suspect]
     Dosage: 2 TAB ONCE PO
     Route: 047
     Dates: start: 20050318, end: 20050318
  2. WHITE WINE [Suspect]
     Dosage: 1 BOTTLE ONCE PO
     Route: 048
     Dates: start: 20050318, end: 20050318
  3. DOMINAL FORTE [Suspect]
     Dosage: 960 MG ONCE PO
     Route: 048
     Dates: start: 20050318, end: 20050318
  4. SEROQUEL [Suspect]
     Dosage: 800 MG ONCE PO
     Route: 048
     Dates: start: 20050318, end: 20050318
  5. SEROQUEL [Suspect]
     Dosage: VAR ONCE
     Dates: start: 20050318, end: 20050318

REACTIONS (3)
  - INTENTIONAL MISUSE [None]
  - SOMNOLENCE [None]
  - TACHYCARDIA [None]
